FAERS Safety Report 16692012 (Version 2)
Quarter: 2019Q3

REPORT INFORMATION
  Report Type: Spontaneous
  Country: US (occurrence: US)
  Receive Date: 20190812
  Receipt Date: 20190910
  Transmission Date: 20191004
  Serious: Yes (Other)
  Sender: FDA-Public Use
  Company Number: US-BAYER-2019-149122

PATIENT
  Age: 22 Year
  Sex: Female
  Weight: 57.6 kg

DRUGS (4)
  1. POVIDONE-IODINE. [Concomitant]
     Active Substance: POVIDONE-IODINE
     Dosage: UNK
     Dates: start: 20190809, end: 20190809
  2. LIDOCAINE. [Concomitant]
     Active Substance: LIDOCAINE
     Dosage: UNK
     Dates: start: 20190809, end: 20190809
  3. MIRENA [Suspect]
     Active Substance: LEVONORGESTREL
     Indication: CONTRACEPTION
     Dosage: 20 MCG/24HR, CONT
     Route: 015
     Dates: start: 20190809, end: 20190809
  4. MIRENA [Suspect]
     Active Substance: LEVONORGESTREL
     Indication: CONTRACEPTION

REACTIONS (5)
  - Procedural pain [None]
  - Device difficult to use [None]
  - Complication of device insertion [None]
  - Device use issue [None]
  - Procedural haemorrhage [None]

NARRATIVE: CASE EVENT DATE: 20190809
